FAERS Safety Report 7208877-1 (Version None)
Quarter: 2010Q4

REPORT INFORMATION
  Report Type: 
  Country: None (occurrence: None)
  Receive Date: 20101222
  Receipt Date: 20101216
  Transmission Date: 20110411
  Serious: Yes (Other)
  Sender: FDA-Public Use
  Company Number: 2010SP064630

PATIENT
  Age: 18 Year
  Sex: Male

DRUGS (1)
  1. CORICIDIN HBP COUGH AND COLD [Suspect]
     Indication: HALLUCINATION
     Dosage: 16 DF; PO
     Route: 048

REACTIONS (16)
  - AGITATION [None]
  - CLONUS [None]
  - DRUG ABUSE [None]
  - DRUG TOXICITY [None]
  - EYE MOVEMENT DISORDER [None]
  - HYPERREFLEXIA [None]
  - INCORRECT DOSE ADMINISTERED [None]
  - INTENTIONAL DRUG MISUSE [None]
  - MYDRIASIS [None]
  - OVERDOSE [None]
  - RESPIRATORY RATE INCREASED [None]
  - SEROTONIN SYNDROME [None]
  - SHOPLIFTING [None]
  - SINUS TACHYCARDIA [None]
  - TREMOR [None]
  - UNRESPONSIVE TO STIMULI [None]
